FAERS Safety Report 6695010-8 (Version None)
Quarter: 2010Q2

REPORT INFORMATION
  Report Type: 
  Country: None (occurrence: None)
  Receive Date: 20100423
  Receipt Date: 20100412
  Transmission Date: 20101027
  Serious: Yes (Hospitalization)
  Sender: FDA-Public Use
  Company Number: PHHY2010PH22686

PATIENT

DRUGS (1)
  1. LEPONEX [Suspect]

REACTIONS (1)
  - COMA [None]
